FAERS Safety Report 5631811-2 (Version None)
Quarter: 2008Q1

REPORT INFORMATION
  Report Type: 
  Country: None (occurrence: None)
  Receive Date: 20080220
  Receipt Date: 20080213
  Transmission Date: 20080703
  Serious: Yes (Other)
  Sender: FDA-Public Use
  Company Number: PHEH2008US01849

PATIENT

DRUGS (5)
  1. TEKTURNA [Suspect]
  2. PRILOSEC [Suspect]
  3. MICARDIS HCT [Suspect]
  4. LIPITOR [Suspect]
  5. SYNTHROID [Suspect]

REACTIONS (13)
  - ARTHRALGIA [None]
  - ASTHENIA [None]
  - BLOOD PRESSURE DECREASED [None]
  - CARDIAC FLUTTER [None]
  - DRUG INTERACTION [None]
  - EXTRASYSTOLES [None]
  - FEELING ABNORMAL [None]
  - FEELING JITTERY [None]
  - HEADACHE [None]
  - HEART RATE INCREASED [None]
  - LUPUS-LIKE SYNDROME [None]
  - MUSCULOSKELETAL STIFFNESS [None]
  - MYALGIA [None]
